FAERS Safety Report 23510394 (Version 1)
Quarter: 2024Q1

REPORT INFORMATION
  Report Type: Report from Study
  Country: FR (occurrence: FR)
  Receive Date: 20240211
  Receipt Date: 20240211
  Transmission Date: 20240410
  Serious: Yes (Hospitalization)
  Sender: FDA-Public Use
  Company Number: FR-ABBVIE-20K-056-3355876-00

PATIENT
  Age: 26 Year
  Sex: Male
  Weight: 107 kg

DRUGS (4)
  1. ADALIMUMAB [Suspect]
     Active Substance: ADALIMUMAB\ISOPROPYL ALCOHOL
     Indication: Colitis ulcerative
     Dosage: FORM STRENGTH 80 MILLIGRAMS
     Route: 058
     Dates: start: 201906, end: 20190605
  2. ADALIMUMAB [Suspect]
     Active Substance: ADALIMUMAB\ISOPROPYL ALCOHOL
     Dosage: FORM STRENGTH 80 MILLIGRAMS
     Route: 058
  3. ADALIMUMAB [Suspect]
     Active Substance: ADALIMUMAB\ISOPROPYL ALCOHOL
     Dosage: FORM STRENGTH 80 MILLIGRAMS
     Route: 058
     Dates: start: 20180425, end: 20180425
  4. ROWASA [Concomitant]
     Active Substance: MESALAMINE
     Indication: Gastrointestinal disorder
     Route: 048
     Dates: start: 20170601

REACTIONS (3)
  - Rectal haemorrhage [Recovered/Resolved]
  - Abdominal pain [Recovered/Resolved]
  - Hospitalisation [Unknown]

NARRATIVE: CASE EVENT DATE: 20190605
